FAERS Safety Report 5982033-7 (Version None)
Quarter: 2008Q4

REPORT INFORMATION
  Report Type: 
  Country: None (occurrence: None)
  Receive Date: 20081202
  Receipt Date: 20081123
  Transmission Date: 20090506
  Serious: Yes (Other)
  Sender: FDA-Public Use
  Company Number: 2008SP023883

PATIENT
  Age: 54 Year
  Sex: Female

DRUGS (3)
  1. PEG-INTRON [Suspect]
     Indication: HEPATITIS C
     Dates: start: 20080822
  2. RIBAVIRIN [Suspect]
     Indication: HEPATITIS C
     Dosage: PO
     Route: 048
     Dates: start: 20080822
  3. PROZAC [Concomitant]

REACTIONS (3)
  - NEOPLASM [None]
  - ODYNOPHAGIA [None]
  - OROPHARYNGEAL PAIN [None]
